FAERS Safety Report 9812981 (Version 1)
Quarter: 2014Q1

REPORT INFORMATION
  Report Type: Spontaneous
  Country: CA (occurrence: None)
  Receive Date: 20140108
  Receipt Date: 20140108
  Transmission Date: 20141002
  Serious: Yes (Other)
  Sender: FDA-Public Use
  Company Number: CA-014184

PATIENT
  Age: 68 Year
  Sex: Male

DRUGS (3)
  1. FIRMAGON [Suspect]
     Route: 058
     Dates: start: 20100401
  2. CRESTOR [Concomitant]
  3. PMS RAMIPRIL HCTZ [Concomitant]

REACTIONS (1)
  - Haematuria [None]
